FAERS Safety Report 8947439 (Version 1)
Quarter: 2012Q4

REPORT INFORMATION
  Report Type: 
  Country: US (occurrence: US)
  Receive Date: 20121205
  Receipt Date: 20121205
  Transmission Date: 20130627
  Serious: Yes (Life-Threatening, Hospitalization)
  Sender: FDA-Public Use
  Company Number: US-ELI_LILLY_AND_COMPANY-US201211007877

PATIENT
  Sex: Female

DRUGS (16)
  1. FORTEO [Suspect]
     Indication: OSTEOPOROSIS
     Dosage: 20 ug, qd
     Dates: start: 201204, end: 201208
  2. VITAMINS NOS [Concomitant]
  3. CALCIUM +D3 [Concomitant]
  4. OMEPRAZOLE [Concomitant]
     Dosage: 20 mg, bid
  5. ZOCOR [Concomitant]
     Dosage: UNK, each evening
  6. NORVASC [Concomitant]
     Dosage: UNK, qd
  7. THYROID THERAPY [Concomitant]
     Indication: THYROID DISORDER
     Dosage: 125 mg, qd
  8. THYROID THERAPY [Concomitant]
     Dosage: 125 mg, qd
  9. LYRICA [Concomitant]
     Dosage: UNK, bid
  10. CRESTOR [Concomitant]
     Dosage: UNK, qd
  11. DELTASONE [Concomitant]
     Dosage: 20 mg, UNK
  12. PLAQUENIL [Concomitant]
     Dosage: 200 mg, bid
  13. LASIX [Concomitant]
  14. CELEXA [Concomitant]
     Dosage: 20 mg, qd
  15. AMBIEN [Concomitant]
  16. XANAX [Concomitant]
     Dosage: 0.5 mg, tid

REACTIONS (14)
  - Cardiac arrest [Recovered/Resolved]
  - Loss of consciousness [Unknown]
  - Joint swelling [Unknown]
  - Abasia [Unknown]
  - Dyspnoea [Unknown]
  - Local swelling [Unknown]
  - Feeling hot [Recovering/Resolving]
  - Erythema [Unknown]
  - Musculoskeletal disorder [Unknown]
  - Malaise [Unknown]
  - Limb injury [Unknown]
  - Rash [Unknown]
  - Swelling face [Unknown]
  - Pain [Unknown]
